FAERS Safety Report 8505347-5 (Version None)
Quarter: 2012Q3

REPORT INFORMATION
  Report Type: 
  Country: None (occurrence: None)
  Receive Date: 20120712
  Receipt Date: 20120706
  Transmission Date: 20120928
  Serious: Yes (Other)
  Sender: FDA-Public Use
  Company Number: PHEH2012US013402

PATIENT
  Sex: Female

DRUGS (6)
  1. VALTREX [Concomitant]
     Indication: HERPES VIRUS INFECTION
     Dosage: 500 MG, PRN
     Route: 048
  2. TIMOLOL MALEATE [Concomitant]
     Indication: GLAUCOMA
     Dosage: 0.5 %, DAILY
     Route: 047
  3. NEXIUM [Concomitant]
     Indication: GASTROOESOPHAGEAL REFLUX DISEASE
     Dosage: 40 MG, DAILY
     Route: 048
  4. TRAVATAN [Concomitant]
     Indication: GLAUCOMA
     Dosage: 0.004 %, DAILY
     Route: 047
  5. ROSTACIOUS [Concomitant]
     Indication: GLAUCOMA
     Route: 047
  6. MYFORTIC [Suspect]
     Indication: DERMATOMYOSITIS
     Dosage: 40 MG, DAILY
     Route: 048
     Dates: start: 20110326

REACTIONS (2)
  - VISUAL IMPAIRMENT [None]
  - NEOPLASM MALIGNANT [None]
